FAERS Safety Report 9002993 (Version 1)
Quarter: 2013Q1

REPORT INFORMATION
  Report Type: Spontaneous
  Country: US (occurrence: US)
  Receive Date: 20130108
  Receipt Date: 20130108
  Transmission Date: 20140127
  Serious: No
  Sender: FDA-Public Use
  Company Number: US-ASTRAZENECA-2012SE96345

PATIENT
  Age: 74 Year
  Sex: Female

DRUGS (30)
  1. METOPROLOL TARTRATE [Suspect]
     Route: 048
  2. SYMBICORT [Suspect]
     Dosage: 160-4.5 MCG, TWICE DAILY
     Route: 055
  3. ZESTRIL [Suspect]
     Route: 048
  4. PRILOSEC [Suspect]
     Indication: PEPTIC ULCER
     Route: 048
  5. PRILOSEC [Suspect]
     Indication: GASTROOESOPHAGEAL REFLUX DISEASE
     Route: 048
  6. SEROQUEL [Suspect]
     Route: 048
  7. ASPIRIN [Concomitant]
     Route: 048
  8. SPECTAZOLE [Concomitant]
  9. SEPTRA DS [Concomitant]
     Dosage: 800-160 MG, TWICE DAILY
     Route: 048
  10. GABAPENTIN [Concomitant]
     Route: 048
  11. BACLOFEN [Concomitant]
     Route: 048
  12. MECLIZINE HCL [Concomitant]
     Route: 048
  13. MECLIZINE HCL [Concomitant]
     Route: 048
  14. LOVASTATIN [Concomitant]
     Route: 048
  15. REQUIP [Concomitant]
     Route: 048
  16. HUMALOG QUICK PEN [Concomitant]
     Dosage: 4 UNITS BEFORE LUNCH AND DINNER
     Route: 058
  17. NORVASC [Concomitant]
     Route: 048
  18. LASIX [Concomitant]
     Route: 048
  19. LANTUS [Concomitant]
     Dosage: 20 UNITS AT BED TIME
     Route: 058
  20. ZOFRAN [Concomitant]
     Route: 048
  21. ZOFRAN [Concomitant]
     Route: 048
  22. FLEXERIL [Concomitant]
     Route: 048
  23. GLYCOLAX [Concomitant]
     Route: 048
  24. SYNTHROID [Concomitant]
     Route: 048
  25. CLOBETASOL [Concomitant]
  26. CLOBETASOL EMUL [Concomitant]
  27. COMBIVENT [Concomitant]
     Dosage: 103-18 MCG, 2 PUFFS FIVE TIMES DAILY
     Route: 055
  28. FLORAJEN3 [Concomitant]
     Route: 048
  29. FISH OIL [Concomitant]
     Route: 048
  30. CALCIUM CITRATE WITH VIT D [Concomitant]
     Route: 048

REACTIONS (12)
  - Tinnitus [Unknown]
  - Peptic ulcer [Unknown]
  - Gastrooesophageal reflux disease [Unknown]
  - Localised infection [Unknown]
  - Lumbar spinal stenosis [Unknown]
  - Phlebitis [Unknown]
  - Dysphagia [Unknown]
  - Arthralgia [Unknown]
  - Bursitis [Unknown]
  - Lichen sclerosus [Unknown]
  - Carotid artery disease [Unknown]
  - Balance disorder [Unknown]
